FAERS Safety Report 7428988-5 (Version None)
Quarter: 2011Q2

REPORT INFORMATION
  Report Type: 
  Country: None (occurrence: None)
  Receive Date: 20110412
  Receipt Date: 20110404
  Transmission Date: 20111010
  Serious: Yes (Hospitalization, Other)
  Sender: FDA-Public Use
  Company Number: 2009EN000318

PATIENT
  Age: 53 Year
  Sex: Male
  Weight: 48 kg

DRUGS (9)
  1. LEVOTHYROXINE SODIUM [Concomitant]
  2. METRONIDAZOLE [Concomitant]
  3. CHLORPROMAZINE [Concomitant]
  4. KAY CIEL DURA-TABS [Concomitant]
  5. CANESTEN-HC [Concomitant]
  6. CHLOROMYCETIN [Concomitant]
  7. GENTAMICIN [Concomitant]
  8. ABELCET [Suspect]
     Indication: CANDIDIASIS
     Dosage: 240 MG;X1;IV
     Route: 042
     Dates: start: 20081222, end: 20081222
  9. VANCOMYCIN [Concomitant]

REACTIONS (4)
  - CHILLS [None]
  - HYPERVENTILATION [None]
  - TACHYCARDIA [None]
  - BLOOD PRESSURE INCREASED [None]
